FAERS Safety Report 6574579-8 (Version None)
Quarter: 2010Q1

REPORT INFORMATION
  Report Type: 
  Country: None (occurrence: None)
  Receive Date: 20100209
  Receipt Date: 20100201
  Transmission Date: 20100710
  Serious: Yes (Hospitalization)
  Sender: FDA-Public Use
  Company Number: DE-TEVA-223363ISR

PATIENT
  Age: 68 Year
  Sex: Male
  Weight: 79 kg

DRUGS (3)
  1. SIMVASTATIN [Suspect]
     Indication: HYPERLIPIDAEMIA
     Route: 048
     Dates: start: 20050101
  2. ACETYLSALICYLIC ACID [Interacting]
     Indication: CORONARY ARTERY DISEASE
     Route: 048
     Dates: start: 20080101, end: 20080908
  3. PHENPROCOUMON [Interacting]
     Indication: ATRIAL FIBRILLATION
     Route: 048
     Dates: start: 20080501, end: 20080904

REACTIONS (2)
  - DRUG INTERACTION [None]
  - HAEMATURIA [None]
